FAERS Safety Report 13612150 (Version 2)
Quarter: 2017Q2

REPORT INFORMATION
  Report Type: Spontaneous
  Country: US (occurrence: US)
  Receive Date: 20170605
  Receipt Date: 20170607
  Transmission Date: 20170830
  Serious: Yes (Hospitalization)
  Sender: FDA-Public Use
  Company Number: US-PFIZER INC-2017241815

PATIENT
  Age: 67 Year
  Sex: Female
  Weight: 66 kg

DRUGS (12)
  1. TYLENOL [Concomitant]
     Active Substance: ACETAMINOPHEN
     Indication: PAIN
     Dosage: 500MG TABLETS, 2 TABLETS EVERY 6 HOURS AS NEEDED
  2. CARVEDILOL. [Concomitant]
     Active Substance: CARVEDILOL
     Indication: HYPERTENSION
     Dosage: 6.25MG TABLET, ONE TABLET TWICE A DAY
     Dates: start: 20160701
  3. ANASTROZOLE. [Concomitant]
     Active Substance: ANASTROZOLE
     Indication: BLOOD OESTROGEN ABNORMAL
     Dosage: 1MG, ONCE A DAY
     Dates: start: 20160701
  4. ASPIRIN. [Concomitant]
     Active Substance: ASPIRIN
     Indication: BLOOD DISORDER
     Dosage: 81MG ONCE A DAY
     Dates: start: 201512
  5. LIPITOR [Concomitant]
     Active Substance: ATORVASTATIN CALCIUM
     Indication: CARDIOVASCULAR DISORDER
     Dosage: 40MG ONE TABLET A DAY
  6. ELIQUIS [Concomitant]
     Active Substance: APIXABAN
     Indication: BLOOD DISORDER
     Dosage: 5MG TWICE A DAY
     Dates: start: 20160701
  7. IBRANCE [Suspect]
     Active Substance: PALBOCICLIB
     Indication: BREAST CANCER METASTATIC
     Dosage: 125MG (ONCE DAILY 21 DAY ON AND OFF 7 DAYS
     Dates: start: 20170128, end: 20170216
  8. PREDNISONE. [Concomitant]
     Active Substance: PREDNISONE
     Dosage: IS NOW TAKING 4MG A DAY
  9. VITAMIN D3 [Concomitant]
     Active Substance: CHOLECALCIFEROL
     Indication: BLOOD CALCIUM ABNORMAL
     Dosage: 1000UNITS, ONE TABLET ONCE A DAY
     Dates: start: 201512
  10. PREDNISONE. [Concomitant]
     Active Substance: PREDNISONE
     Indication: TEMPORAL ARTERITIS
     Dosage: TAPERED DOSE, STARTED ON 60MG ONCE A DAY
     Dates: start: 20150926
  11. LASIX [Concomitant]
     Active Substance: FUROSEMIDE
     Indication: OEDEMA
     Dosage: 20MG AS NEEDED
  12. CALCIUM [Concomitant]
     Active Substance: CALCIUM
     Indication: BONE DISORDER
     Dosage: 500MG TABLET, 2 TABLETS ONCE A DAY
     Dates: start: 201512

REACTIONS (18)
  - Asthenia [Not Recovered/Not Resolved]
  - Dehydration [Recovered/Resolved]
  - Haemoglobin decreased [Unknown]
  - Fatigue [Not Recovered/Not Resolved]
  - Discomfort [Recovering/Resolving]
  - White blood cell count decreased [Unknown]
  - Epistaxis [Unknown]
  - Nausea [Unknown]
  - Stomatitis [Recovered/Resolved]
  - Blood test abnormal [Unknown]
  - Hypotension [Recovered/Resolved]
  - Oedema peripheral [Not Recovered/Not Resolved]
  - Dyspnoea [Not Recovered/Not Resolved]
  - Internal haemorrhage [Recovered/Resolved]
  - Mucosal inflammation [Not Recovered/Not Resolved]
  - Dysphagia [Not Recovered/Not Resolved]
  - Eructation [Not Recovered/Not Resolved]
  - Platelet count decreased [Unknown]

NARRATIVE: CASE EVENT DATE: 201701
